FAERS Safety Report 5425109-5 (Version None)
Quarter: 2007Q3

REPORT INFORMATION
  Report Type: 
  Country: None (occurrence: None)
  Receive Date: 20070824
  Receipt Date: 20070730
  Transmission Date: 20080115
  Serious: Yes (Hospitalization, Other)
  Sender: FDA-Public Use
  Company Number: US-MERCK-0603USA03425

PATIENT
  Age: 41 Year
  Sex: Male
  Weight: 95 kg

DRUGS (7)
  1. INVANZ [Suspect]
     Indication: INFECTION
     Route: 042
     Dates: start: 20060309, end: 20060319
  2. DEPAKOTE [Suspect]
     Indication: CONVULSION
     Route: 048
  3. DEPAKOTE [Suspect]
     Route: 048
  4. DEPAKOTE [Suspect]
     Route: 048
  5. LOPRESSOR [Concomitant]
     Indication: BLOOD PRESSURE
     Route: 048
  6. VALPROIC ACID [Interacting]
     Route: 042
  7. VALPROIC ACID [Interacting]
     Route: 042

REACTIONS (9)
  - CONVULSION [None]
  - DRUG INTERACTION [None]
  - DRUG LEVEL DECREASED [None]
  - ESCHERICHIA INFECTION [None]
  - GRAND MAL CONVULSION [None]
  - PROPIONIBACTERIUM INFECTION [None]
  - STAPHYLOCOCCAL INFECTION [None]
  - WOUND DEHISCENCE [None]
  - WOUND DRAINAGE [None]
